FAERS Safety Report 16613986 (Version 2)
Quarter: 2019Q3

REPORT INFORMATION
  Report Type: Report from Study
  Country: US (occurrence: US)
  Receive Date: 20190723
  Receipt Date: 20190809
  Transmission Date: 20191004
  Serious: No
  Sender: FDA-Public Use
  Company Number: US-JAZZ-2017-US-017043

PATIENT
  Sex: Female

DRUGS (41)
  1. XYREM [Suspect]
     Active Substance: SODIUM OXYBATE
     Dosage: 2 G, BID
     Route: 048
     Dates: start: 201604
  2. PREVACID [Concomitant]
     Active Substance: LANSOPRAZOLE
  3. MAGNESIUM OXIDE. [Concomitant]
     Active Substance: MAGNESIUM OXIDE
  4. HUMIRA [Concomitant]
     Active Substance: ADALIMUMAB
  5. PHENOBARBITAL. [Concomitant]
     Active Substance: PHENOBARBITAL
  6. LAMOTRIGINE. [Concomitant]
     Active Substance: LAMOTRIGINE
  7. DICLOFENAC [Concomitant]
     Active Substance: DICLOFENAC
  8. PROAIR HFA [Concomitant]
     Active Substance: ALBUTEROL SULFATE
  9. FAMOTIDINE. [Concomitant]
     Active Substance: FAMOTIDINE
  10. FLUCONAZOLE. [Concomitant]
     Active Substance: FLUCONAZOLE
  11. XYREM [Suspect]
     Active Substance: SODIUM OXYBATE
     Dosage: 2.25 G, BID
     Route: 048
     Dates: start: 201403, end: 201404
  12. XYREM [Suspect]
     Active Substance: SODIUM OXYBATE
     Dosage: DOSE ADJUSTMENT
     Route: 048
     Dates: start: 201404, end: 201604
  13. ADVAIR HFA [Concomitant]
     Active Substance: FLUTICASONE PROPIONATE\SALMETEROL XINAFOATE
  14. AZASITE [Concomitant]
     Active Substance: AZITHROMYCIN MONOHYDRATE
  15. PROPRANOLOL [Concomitant]
     Active Substance: PROPRANOLOL HYDROCHLORIDE
  16. PROLIA [Concomitant]
     Active Substance: DENOSUMAB
  17. DESONIDE. [Concomitant]
     Active Substance: DESONIDE
  18. ONDANSETRON [Concomitant]
     Active Substance: ONDANSETRON
  19. SYNTHROID [Concomitant]
     Active Substance: LEVOTHYROXINE SODIUM
  20. HYALGAN [Concomitant]
     Active Substance: HYALURONATE SODIUM
  21. CODEINE SULFATE. [Concomitant]
     Active Substance: CODEINE SULFATE
  22. LIDOCAINE. [Concomitant]
     Active Substance: LIDOCAINE
  23. PREVIDENT [Concomitant]
     Active Substance: SODIUM FLUORIDE
  24. LIPITOR [Concomitant]
     Active Substance: ATORVASTATIN CALCIUM
  25. DICLOFENAC SODIUM. [Concomitant]
     Active Substance: DICLOFENAC SODIUM
  26. NABUMETONE. [Concomitant]
     Active Substance: NABUMETONE
  27. CYTOMEL [Concomitant]
     Active Substance: LIOTHYRONINE SODIUM
  28. ORPHENADRINE [Concomitant]
     Active Substance: ORPHENADRINE
  29. VITAMIN D1 [Concomitant]
  30. MOMETASONE FUROATE. [Concomitant]
     Active Substance: MOMETASONE FUROATE
  31. XYREM [Suspect]
     Active Substance: SODIUM OXYBATE
     Indication: SLEEP DISORDER
     Dosage: 2.25 G, BID
     Route: 048
     Dates: start: 201312, end: 201401
  32. CHLORAL HYDRATE [Concomitant]
     Active Substance: CHLORAL HYDRATE
  33. NORVASC [Concomitant]
     Active Substance: AMLODIPINE BESYLATE
  34. TRAMADOL HYDROCHLORIDE. [Concomitant]
     Active Substance: TRAMADOL HYDROCHLORIDE
  35. RESTASIS [Concomitant]
     Active Substance: CYCLOSPORINE
  36. AZITHROMYCIN ANHYDROUS. [Concomitant]
     Active Substance: AZITHROMYCIN ANHYDROUS
  37. GABAPENTIN. [Concomitant]
     Active Substance: GABAPENTIN
  38. CALCIUM [Concomitant]
     Active Substance: CALCIUM
  39. FOLATE [Concomitant]
     Active Substance: FOLATE SODIUM
  40. LIOTHYRONINE SOD. [Concomitant]
  41. FISH OIL [Concomitant]
     Active Substance: FISH OIL

REACTIONS (1)
  - Carpal tunnel syndrome [Unknown]
